FAERS Safety Report 16551336 (Version 1)
Quarter: 2019Q3

REPORT INFORMATION
  Report Type: Spontaneous
  Country: US (occurrence: US)
  Receive Date: 20190710
  Receipt Date: 20190710
  Transmission Date: 20191004
  Serious: No
  Sender: FDA-Public Use
  Company Number: US-GLAXOSMITHKLINE-US2019123461

PATIENT
  Age: 60 Year
  Sex: Female

DRUGS (1)
  1. ABREVA [Suspect]
     Active Substance: DOCOSANOL
     Indication: ORAL HERPES
     Dosage: APPLIED ENOUGH FIVE TIMES DAILY
     Route: 061

REACTIONS (3)
  - Oral herpes [Recovered/Resolved]
  - Wrong technique in product usage process [Unknown]
  - Condition aggravated [Recovered/Resolved]
